FAERS Safety Report 23277065 (Version 1)
Quarter: 2023Q4

REPORT INFORMATION
  Report Type: Spontaneous
  Country: CN (occurrence: CN)
  Receive Date: 20231208
  Receipt Date: 20231208
  Transmission Date: 20240110
  Serious: Yes (Other)
  Sender: FDA-Public Use
  Company Number: CN-002147023-NVSC2023CN257644

PATIENT
  Age: 10 Year
  Sex: Male
  Weight: 23 kg

DRUGS (3)
  1. DEXAMETHASONE\TOBRAMYCIN [Suspect]
     Active Substance: DEXAMETHASONE\TOBRAMYCIN
     Indication: Keratitis
     Dosage: 1 DRP, TID
     Route: 047
     Dates: start: 20231106, end: 20231120
  2. ACYCLOVIR [Concomitant]
     Active Substance: ACYCLOVIR
     Indication: Keratitis
     Dosage: 1 DRP, Q4H (SIX TIMES A DAY)
     Route: 047
     Dates: start: 20231106, end: 20231120
  3. RIBAVIRIN [Concomitant]
     Active Substance: RIBAVIRIN
     Indication: Keratitis
     Dosage: 1 DRP, Q4H (SIX TIMES A DAY)
     Route: 047
     Dates: start: 20231106, end: 20231120

REACTIONS (3)
  - Conjunctival hyperaemia [Recovering/Resolving]
  - Corneal opacity [Recovering/Resolving]
  - Intraocular pressure increased [Recovering/Resolving]

NARRATIVE: CASE EVENT DATE: 20231120
